FAERS Safety Report 8359191-2 (Version None)
Quarter: 2012Q2

REPORT INFORMATION
  Report Type: 
  Country: None (occurrence: None)
  Receive Date: 20120511
  Receipt Date: 20120502
  Transmission Date: 20120825
  Serious: Yes (Other)
  Sender: FDA-Public Use
  Company Number: 12-350

PATIENT
  Age: 77 Year
  Sex: Male
  Weight: 78.0187 kg

DRUGS (5)
  1. LISINOPRIL [Concomitant]
  2. METFORMIN HCL [Concomitant]
  3. SIMVASTATIN [Concomitant]
  4. ALEVE [Suspect]
     Indication: ARTHRALGIA
     Dosage: 3DF / DAILY / ORAL
     Route: 048
     Dates: start: 20120201, end: 20120501
  5. HYDROCHLOROTHIAZIDE [Concomitant]

REACTIONS (1)
  - BLOOD URINE PRESENT [None]
